FAERS Safety Report 8522926 (Version 2)
Quarter: 2012Q4

REPORT INFORMATION
  Report Type: 
  Country: US (occurrence: US)
  Receive Date: 20120420
  Receipt Date: 20121206
  Transmission Date: 20130627
  Serious: No
  Sender: FDA-Public Use
  Company Number: US-BIOGENIDEC-2012BI013054

PATIENT
  Age: 71 Year
  Sex: Male

DRUGS (1)
  1. TYSABRI [Suspect]
     Indication: MULTIPLE SCLEROSIS
     Route: 042
     Dates: start: 20110823

REACTIONS (2)
  - Gait disturbance [Not Recovered/Not Resolved]
  - Multiple sclerosis [Unknown]
